FAERS Safety Report 25198620 (Version 1)
Quarter: 2025Q2

REPORT INFORMATION
  Report Type: Other
  Country: US (occurrence: US)
  Receive Date: 20250415
  Receipt Date: 20250415
  Transmission Date: 20250717
  Serious: Yes (Hospitalization, Other)
  Sender: Kanchan Healthcare
  Company Number: US-Kanchan Healthcare INC-2174917

PATIENT
  Age: 47 Year
  Sex: Male

DRUGS (7)
  1. ETHAMBUTOL HYDROCHLORIDE [Suspect]
     Active Substance: ETHAMBUTOL HYDROCHLORIDE
     Indication: Lymph node tuberculosis
  2. RIFAMPIN [Suspect]
     Active Substance: RIFAMPIN
  3. ADALIMUMAB [Concomitant]
     Active Substance: ADALIMUMAB
  4. METHOTREXATE [Concomitant]
     Active Substance: METHOTREXATE
  5. TOZINAMERAN [Suspect]
     Active Substance: TOZINAMERAN
  6. ISONIAZID [Suspect]
     Active Substance: ISONIAZID
  7. PYRAZINAMIDE [Suspect]
     Active Substance: PYRAZINAMIDE

REACTIONS (1)
  - Immune reconstitution inflammatory syndrome associated tuberculosis [Recovered/Resolved]
